FAERS Safety Report 19990992 (Version 1)
Quarter: 2021Q4

REPORT INFORMATION
  Report Type: Spontaneous
  Country: US (occurrence: US)
  Receive Date: 20211025
  Receipt Date: 20211025
  Transmission Date: 20220303
  Serious: Yes (Hospitalization)
  Sender: FDA-Public Use
  Company Number: None

PATIENT
  Sex: Female

DRUGS (11)
  1. HUMIRA [Suspect]
     Active Substance: ADALIMUMAB
     Indication: Ankylosing spondylitis
     Dosage: ?          OTHER FREQUENCY:Q2WKS;
     Route: 058
     Dates: start: 20210715
  2. OXYCODONE [Concomitant]
     Active Substance: OXYCODONE
  3. GABAPENTIN [Concomitant]
     Active Substance: GABAPENTIN
  4. NAPROXEN [Concomitant]
     Active Substance: NAPROXEN
  5. CELECOXIB [Concomitant]
     Active Substance: CELECOXIB
  6. FENTANYL [Concomitant]
     Active Substance: FENTANYL
  7. TIZANIDINE [Concomitant]
     Active Substance: TIZANIDINE
  8. FLUTICASONE [Concomitant]
     Active Substance: FLUTICASONE
  9. DICLOFENAC [Concomitant]
     Active Substance: DICLOFENAC
  10. BUSPIRONE [Concomitant]
     Active Substance: BUSPIRONE HYDROCHLORIDE
  11. BUPROPION [Concomitant]
     Active Substance: BUPROPION

REACTIONS (2)
  - Sinusitis [None]
  - Accident [None]
